FAERS Safety Report 14704066 (Version 2)
Quarter: 2018Q2

REPORT INFORMATION
  Report Type: Spontaneous
  Country: IT (occurrence: IT)
  Receive Date: 20180402
  Receipt Date: 20180604
  Transmission Date: 20180711
  Serious: Yes (Other)
  Sender: FDA-Public Use
  Company Number: IT-ROCHE-2093541

PATIENT
  Age: 48 Year
  Sex: Male

DRUGS (16)
  1. KONAKION [Concomitant]
     Active Substance: PHYTONADIONE
     Route: 065
     Dates: start: 20141217, end: 20160218
  2. TENORMIN [Concomitant]
     Active Substance: ATENOLOL
  3. ANTRA [Concomitant]
     Active Substance: OMEPRAZOLE
     Route: 048
  4. NEORECORMON [Concomitant]
     Active Substance: ERYTHROPOIETIN
     Route: 065
     Dates: start: 20151029, end: 20160413
  5. DIDROGYL [Concomitant]
     Active Substance: CALCIFEDIOL
     Route: 065
     Dates: start: 20091027, end: 20170410
  6. DAKLINZA [Concomitant]
     Active Substance: DACLATASVIR
     Route: 048
     Dates: start: 20151029, end: 20160412
  7. EPREX [Concomitant]
     Active Substance: ERYTHROPOIETIN
  8. COPEGUS [Suspect]
     Active Substance: RIBAVIRIN
     Indication: PRODUCT USED FOR UNKNOWN INDICATION
     Route: 048
     Dates: start: 20151029, end: 20160323
  9. GRANULOKINE [Concomitant]
     Active Substance: FILGRASTIM
     Route: 065
     Dates: start: 20110118, end: 20170510
  10. LASIX [Concomitant]
     Active Substance: FUROSEMIDE
     Route: 065
     Dates: start: 20110118, end: 20170510
  11. ZYLORIC [Concomitant]
     Active Substance: ALLOPURINOL
     Route: 065
     Dates: start: 20110310, end: 20170510
  12. KIVEXA [Concomitant]
     Active Substance: ABACAVIR SULFATE\LAMIVUDINE
     Route: 065
     Dates: start: 20061123, end: 20160615
  13. APROVEL [Concomitant]
     Active Substance: IRBESARTAN
     Route: 065
     Dates: start: 20141217, end: 20160218
  14. TIVICAY [Concomitant]
     Active Substance: DOLUTEGRAVIR SODIUM
     Route: 065
     Dates: start: 20110310, end: 20170510
  15. KANRENOL [Concomitant]
     Active Substance: CANRENOATE POTASSIUM
     Route: 065
     Dates: start: 20140226, end: 20160218
  16. SOVALDI [Concomitant]
     Active Substance: SOFOSBUVIR
     Route: 048
     Dates: start: 20151029, end: 20160413

REACTIONS (2)
  - Renal failure [Unknown]
  - Anaemia [Unknown]

NARRATIVE: CASE EVENT DATE: 20160323
